FAERS Safety Report 8703950 (Version 2)
Quarter: 2012Q4

REPORT INFORMATION
  Report Type: 
  Country: AU (occurrence: AU)
  Receive Date: 20120803
  Receipt Date: 20121227
  Transmission Date: 20130627
  Serious: Yes (Hospitalization, Other)
  Sender: FDA-Public Use
  Company Number: AU-BRISTOL-MYERS SQUIBB COMPANY-16820722

PATIENT
  Sex: Male

DRUGS (1)
  1. YERVOY [Suspect]
     Indication: METASTATIC MALIGNANT MELANOMA
     Dates: start: 201204

REACTIONS (5)
  - Metastases to lung [Unknown]
  - Chest pain [Unknown]
  - Haemoptysis [Unknown]
  - Dyspnoea [Unknown]
  - Skin toxicity [Unknown]
